FAERS Safety Report 18225492 (Version 1)
Quarter: 2020Q3

REPORT INFORMATION
  Report Type: Spontaneous
  Country: PH (occurrence: PH)
  Receive Date: 20200903
  Receipt Date: 20200903
  Transmission Date: 20201103
  Serious: Yes (Hospitalization)
  Sender: FDA-Public Use
  Company Number: PH-ROCHE-2668099

PATIENT
  Age: 79 Year
  Sex: Male
  Weight: 70 kg

DRUGS (2)
  1. TOCILIZUMAB. [Suspect]
     Active Substance: TOCILIZUMAB
     Indication: PNEUMONIA
     Dosage: ONE DOSE
     Route: 041
     Dates: start: 20200708, end: 20200708
  2. TOCILIZUMAB. [Suspect]
     Active Substance: TOCILIZUMAB
     Dosage: ONE DOSE
     Route: 041
     Dates: start: 20200710, end: 20200710

REACTIONS (4)
  - Blood immunoglobulin G increased [Recovering/Resolving]
  - Off label use [Unknown]
  - Blood immunoglobulin M increased [Recovering/Resolving]
  - Intentional product use issue [Unknown]
